FAERS Safety Report 4864089-8 (Version None)
Quarter: 2005Q4

REPORT INFORMATION
  Report Type: 
  Country: None (occurrence: None)
  Receive Date: 20051222
  Receipt Date: 20050722
  Transmission Date: 20060501
  Serious: Yes (Other)
  Sender: FDA-Public Use
  Company Number: US-GLAXOSMITHKLINE-A0567282A

PATIENT
  Age: 11 Year
  Sex: Female

DRUGS (2)
  1. WELLBUTRIN XL [Suspect]
     Indication: DEPRESSION
     Dosage: 150MG PER DAY
     Route: 048
     Dates: start: 20050322
  2. TRAZODONE [Concomitant]
     Dosage: 50MG AT NIGHT
     Dates: start: 20050322

REACTIONS (4)
  - AMENORRHOEA [None]
  - DEPRESSION [None]
  - SUICIDE ATTEMPT [None]
  - WEIGHT INCREASED [None]
